FAERS Safety Report 5897998-1 (Version None)
Quarter: 2008Q3

REPORT INFORMATION
  Report Type: 
  Country: None (occurrence: None)
  Receive Date: 20080925
  Receipt Date: 20080915
  Transmission Date: 20090109
  Serious: Yes (Hospitalization)
  Sender: FDA-Public Use
  Company Number: GB-ASTRAZENECA-2008GB01721

PATIENT
  Age: 54 Year
  Sex: Male

DRUGS (1)
  1. SYMBICORT [Suspect]
     Dosage: 200/6 UG  2 INHALATIONS BID
     Route: 055
     Dates: start: 20070401

REACTIONS (4)
  - DRY THROAT [None]
  - PHARYNGEAL INFLAMMATION [None]
  - RHINITIS ALLERGIC [None]
  - THROAT IRRITATION [None]
